FAERS Safety Report 5398848-2 (Version None)
Quarter: 2007Q3

REPORT INFORMATION
  Report Type: 
  Country: None (occurrence: None)
  Receive Date: 20070727
  Receipt Date: 20070723
  Transmission Date: 20080115
  Serious: Yes (Life-Threatening, Hospitalization, Congenital Anomaly)
  Sender: FDA-Public Use
  Company Number: PHNU2007DE02613

PATIENT
  Sex: Female
  Weight: 3145 kg

DRUGS (4)
  1. LEPONEX [Suspect]
     Dosage: MATERNAL DOSE: 150 MG/DAY
     Route: 064
  2. LEPONEX [Suspect]
     Dosage: MATERNAL DOSE: 50 MG/DAY
     Route: 064
  3. FLUOXETINE [Suspect]
     Dosage: MATERNAL DOSE: 20 MG/DAY
     Route: 064
  4. ZOLPIDEM TARTRATE [Suspect]
     Dosage: MATERNAL DOSE: 20 MG/DAY
     Route: 064

REACTIONS (5)
  - ANAL ATRESIA [None]
  - DRUG EXPOSURE DURING PREGNANCY [None]
  - OESOPHAGEAL ATRESIA [None]
  - PELVIC KIDNEY [None]
  - VACTERL SYNDROME [None]
